FAERS Safety Report 10228304 (Version 2)
Quarter: 2014Q2

REPORT INFORMATION
  Report Type: Other
  Country: CN (occurrence: CN)
  Receive Date: 20140610
  Receipt Date: 20140610
  Transmission Date: 20141212
  Serious: Yes (Death, Hospitalization, Other)
  Sender: FDA-Public Use
  Company Number: CN-MPIJNJ-2012-02908

PATIENT
  Sex: 0

DRUGS (2)
  1. VELCADE [Suspect]
     Indication: PLASMA CELL MYELOMA
     Dosage: UNK
     Route: 042
     Dates: start: 201006
  2. VELCADE [Suspect]
     Dosage: 2 MG, UNK
     Route: 042
     Dates: start: 20110901, end: 20110925

REACTIONS (7)
  - Death [Fatal]
  - Hepatic mass [Unknown]
  - Lymphadenopathy [Unknown]
  - Thrombocytopenia [Recovered/Resolved]
  - Respiratory tract infection [Unknown]
  - Blood immunoglobulin G increased [Unknown]
  - Platelet count decreased [Unknown]
